FAERS Safety Report 14999322 (Version 1)
Quarter: 2018Q2

REPORT INFORMATION
  Report Type: Spontaneous
  Country: US (occurrence: US)
  Receive Date: 20180612
  Receipt Date: 20180612
  Transmission Date: 20180711
  Serious: No
  Sender: FDA-Public Use
  Company Number: US-PFIZER INC-2016570613

PATIENT
  Age: 66 Year
  Sex: Male
  Weight: 65 kg

DRUGS (1)
  1. IBRANCE [Suspect]
     Active Substance: PALBOCICLIB
     Indication: BREAST CANCER STAGE IV
     Dosage: 125 MG, CYCLIC (FOR 21 DAYS AND THEN OFF FOR 7 DAYS)
     Route: 048

REACTIONS (2)
  - Product use issue [Unknown]
  - Alopecia [Not Recovered/Not Resolved]
